FAERS Safety Report 18017349 (Version 4)
Quarter: 2020Q4

REPORT INFORMATION
  Report Type: Spontaneous
  Country: US (occurrence: US)
  Receive Date: 20200714
  Receipt Date: 20201020
  Transmission Date: 20210113
  Serious: No
  Sender: FDA-Public Use
  Company Number: US-BIOGEN-2020BI00892922

PATIENT
  Sex: Female

DRUGS (1)
  1. TYSABRI [Suspect]
     Active Substance: NATALIZUMAB
     Indication: MULTIPLE SCLEROSIS
     Dosage: INFUSED OVER 1 HOUR
     Route: 042
     Dates: start: 20200618

REACTIONS (4)
  - Fall [Recovered/Resolved]
  - Lower limb fracture [Unknown]
  - Multiple sclerosis relapse [Not Recovered/Not Resolved]
  - Osteoporosis [Not Recovered/Not Resolved]

NARRATIVE: CASE EVENT DATE: 2020
